FAERS Safety Report 5477986-X (Version None)
Quarter: 2007Q4

REPORT INFORMATION
  Report Type: 
  Country: None (occurrence: None)
  Receive Date: 20071005
  Receipt Date: 20070927
  Transmission Date: 20080405
  Serious: Yes (Death, Hospitalization)
  Sender: FDA-Public Use
  Company Number: PK-AVENTIS-200716156GDDC

PATIENT
  Age: 65 Year
  Sex: Male

DRUGS (5)
  1. FLAGYL [Suspect]
     Indication: LIVER ABSCESS
     Route: 042
     Dates: start: 20070706, end: 20070706
  2. ZANTAC [Concomitant]
     Dosage: DOSE QUANTITY: 1
     Route: 042
     Dates: start: 20070706, end: 20070707
  3. CLAFORAN [Concomitant]
     Indication: INFECTION
     Route: 042
     Dates: start: 20070708, end: 20070713
  4. PANADOL                            /00020001/ [Concomitant]
     Indication: PAIN
     Dosage: DOSE: 2 TABLETS
     Route: 048
  5. TORADOR [Concomitant]
     Indication: PAIN
     Route: 042

REACTIONS (4)
  - CHILLS [None]
  - HYPERHIDROSIS [None]
  - LIVER ABSCESS [None]
  - PYREXIA [None]
